FAERS Safety Report 8772118 (Version 5)
Quarter: 2012Q4

REPORT INFORMATION
  Report Type: 
  Country: US (occurrence: US)
  Receive Date: 20120906
  Receipt Date: 20121217
  Transmission Date: 20130627
  Serious: Yes (Life-Threatening, Hospitalization, Disabling, Other)
  Sender: FDA-Public Use
  Company Number: US-JNJFOC-20120520574

PATIENT
  Age: 40 None
  Sex: Male

DRUGS (6)
  1. MOTRIN [Suspect]
     Route: 065
  2. MOTRIN [Suspect]
     Indication: PAIN
     Route: 065
  3. TYLENOL [Suspect]
     Route: 065
  4. TYLENOL [Suspect]
     Indication: PAIN
     Route: 065
  5. ADVIL [Suspect]
     Indication: HEADACHE
     Route: 065
     Dates: start: 201004
  6. PENICILLIN [Suspect]
     Indication: PHARYNGITIS STREPTOCOCCAL
     Route: 030

REACTIONS (9)
  - Stevens-Johnson syndrome [Not Recovered/Not Resolved]
  - Toxic epidermal necrolysis [Not Recovered/Not Resolved]
  - Skin disorder [Not Recovered/Not Resolved]
  - Respiratory distress [Unknown]
  - Pulmonary oedema [Unknown]
  - Post-traumatic stress disorder [Not Recovered/Not Resolved]
  - Blindness [Not Recovered/Not Resolved]
  - Anxiety [Not Recovered/Not Resolved]
  - Confusional state [Unknown]
